FAERS Safety Report 11977474 (Version 2)
Quarter: 2016Q1

REPORT INFORMATION
  Report Type: Spontaneous
  Country: US (occurrence: US)
  Receive Date: 20160129
  Receipt Date: 20160226
  Transmission Date: 20160526
  Serious: Yes (Death, Other)
  Sender: FDA-Public Use
  Company Number: US-CELGENE-USA-2015103079

PATIENT
  Age: 95 Year
  Sex: Male

DRUGS (1)
  1. REVLIMID [Suspect]
     Active Substance: LENALIDOMIDE
     Indication: PLASMA CELL MYELOMA
     Dosage: 10 MILLIGRAM
     Route: 048
     Dates: start: 201505, end: 2015

REACTIONS (3)
  - Decreased appetite [Unknown]
  - Plasma cell myeloma [Fatal]
  - Weight decreased [Fatal]

NARRATIVE: CASE EVENT DATE: 2015
